FAERS Safety Report 8669332 (Version 9)
Quarter: 2013Q3

REPORT INFORMATION
  Report Type: Spontaneous
  Country: US (occurrence: US)
  Receive Date: 20120717
  Receipt Date: 20130910
  Transmission Date: 20140515
  Serious: Yes (Other)
  Sender: FDA-Public Use
  Company Number: US-ROCHE-1056141

PATIENT
  Age: 16 Year
  Sex: Female
  Weight: 56.75 kg

DRUGS (1)
  1. ACCUTANE [Suspect]
     Indication: ACNE
     Dosage: DOSE INCREASED TO 80 MG DAILY
     Route: 048
     Dates: start: 19990312, end: 199908

REACTIONS (12)
  - Crohn^s disease [Unknown]
  - Colitis ulcerative [Unknown]
  - Inflammatory bowel disease [Unknown]
  - Pseudopolyp [Unknown]
  - Polyp [Unknown]
  - Pouchitis [Unknown]
  - Crohn^s disease [Unknown]
  - Irritable bowel syndrome [Unknown]
  - Dry eye [Unknown]
  - Dry mouth [Unknown]
  - Anxiety [Unknown]
  - Osteopenia [Unknown]
